FAERS Safety Report 24761349 (Version 1)
Quarter: 2024Q4

REPORT INFORMATION
  Report Type: Spontaneous
  Country: FR (occurrence: FR)
  Receive Date: 20241220
  Receipt Date: 20241220
  Transmission Date: 20250115
  Serious: Yes (Other)
  Sender: DR REDDYS
  Company Number: None

PATIENT
  Age: 52 Year
  Sex: Female
  Weight: 53.7 kg

DRUGS (2)
  1. DOXORUBICIN [Suspect]
     Active Substance: DOXORUBICIN
     Indication: Triple negative breast cancer
     Route: 042
     Dates: start: 202410, end: 20241125
  2. KEYTRUDA [Suspect]
     Active Substance: PEMBROLIZUMAB
     Indication: Triple negative breast cancer
     Route: 042
     Dates: start: 20240715, end: 20241104

REACTIONS (2)
  - Adrenal insufficiency [Not Recovered/Not Resolved]
  - Immune-mediated myocarditis [Not Recovered/Not Resolved]

NARRATIVE: CASE EVENT DATE: 20241011
